FAERS Safety Report 7079380-7 (Version None)
Quarter: 2010Q4

REPORT INFORMATION
  Report Type: 
  Country: None (occurrence: None)
  Receive Date: 20101022
  Receipt Date: 20101006
  Transmission Date: 20110411
  Serious: Yes (Other)
  Sender: FDA-Public Use
  Company Number: 1000016724

PATIENT
  Sex: Female

DRUGS (2)
  1. CITALOPRAM HYDROBROMIDE [Suspect]
     Indication: ANXIETY
     Dosage: 10 MG (10 MG,1 IN 1 D),ORAL ; 20 MG (20 MG,1 IN 1 D),ORAL
     Route: 048
     Dates: start: 20080101, end: 20100601
  2. CITALOPRAM HYDROBROMIDE [Suspect]
     Indication: ANXIETY
     Dosage: 10 MG (10 MG,1 IN 1 D),ORAL ; 20 MG (20 MG,1 IN 1 D),ORAL
     Route: 048
     Dates: start: 20100601

REACTIONS (11)
  - ABDOMINAL PAIN [None]
  - ARRHYTHMIA [None]
  - BLOOD URINE PRESENT [None]
  - CONSTIPATION [None]
  - DIZZINESS [None]
  - EXTRASYSTOLES [None]
  - OFF LABEL USE [None]
  - PAIN [None]
  - PALPITATIONS [None]
  - URINARY TRACT INFECTION [None]
  - URINE ABNORMALITY [None]
